FAERS Safety Report 7537883-2 (Version None)
Quarter: 2011Q2

REPORT INFORMATION
  Report Type: 
  Country: None (occurrence: None)
  Receive Date: 20110609
  Receipt Date: 20110606
  Transmission Date: 20111010
  Serious: Yes (Other)
  Sender: FDA-Public Use
  Company Number: PHHY2011GB48999

PATIENT
  Age: 30 Year
  Sex: Male
  Weight: 100 kg

DRUGS (3)
  1. ACETAMINOPHEN [Concomitant]
     Dosage: UNK
     Dates: start: 20110514
  2. ALBUTEROL [Concomitant]
     Dosage: UNK
     Dates: start: 20110516
  3. DICLOFENAC SODIUM [Suspect]
     Dosage: UNK
     Dates: start: 20110519

REACTIONS (3)
  - MUSCULOSKELETAL STIFFNESS [None]
  - DYSPNOEA [None]
  - LIP SWELLING [None]
